FAERS Safety Report 5925859-8 (Version None)
Quarter: 2008Q4

REPORT INFORMATION
  Report Type: 
  Country: None (occurrence: None)
  Receive Date: 20081021
  Receipt Date: 20081008
  Transmission Date: 20090506
  Serious: Yes (Other)
  Sender: FDA-Public Use
  Company Number: CA-ASTRAZENECA-2008UW21801

PATIENT
  Age: 18989 Day
  Sex: Male
  Weight: 122.9 kg

DRUGS (5)
  1. CRESTOR [Suspect]
     Route: 048
     Dates: start: 20061201
  2. DILTIAZEM HCL [Concomitant]
     Route: 048
     Dates: start: 20061001
  3. AVANDAMET [Concomitant]
     Dosage: 1000/2 MG
     Route: 048
     Dates: start: 20061201
  4. AVALIDE [Concomitant]
     Dosage: 300 MG/12.5 MG
     Route: 048
     Dates: start: 19990827
  5. EZETROL [Concomitant]
     Route: 048
     Dates: start: 20070321

REACTIONS (1)
  - HEPATITIS C [None]
